FAERS Safety Report 22367597 (Version 1)
Quarter: 2023Q2

REPORT INFORMATION
  Report Type: Spontaneous
  Country: US (occurrence: US)
  Receive Date: 20230525
  Receipt Date: 20230525
  Transmission Date: 20230721
  Serious: No
  Sender: FDA-Public Use
  Company Number: US-MYLANLABS-2023M1049231

PATIENT
  Sex: Female

DRUGS (2)
  1. ZOLOFT [Suspect]
     Active Substance: SERTRALINE HYDROCHLORIDE
     Indication: Product used for unknown indication
     Dosage: UNK (HALF OF 25MG FOR 4 DAYS)
     Route: 065
     Dates: start: 20230428
  2. ZOLOFT [Suspect]
     Active Substance: SERTRALINE HYDROCHLORIDE
     Dosage: 25 MILLIGRAM, QD (25 MG ON THE 5TH DAY ONWARDS AT NIGHT)
     Route: 065

REACTIONS (3)
  - Anxiety [Unknown]
  - Fatigue [Unknown]
  - Incorrect dose administered [Unknown]
